FAERS Safety Report 12983670 (Version 1)
Quarter: 2016Q4

REPORT INFORMATION
  Report Type: Report from Study
  Country: CA (occurrence: CA)
  Receive Date: 20161129
  Receipt Date: 20161129
  Transmission Date: 20170207
  Serious: Yes (Other)
  Sender: FDA-Public Use
  Company Number: CA-JNJFOC-20161124612

PATIENT
  Age: 54 Year
  Sex: Female
  Weight: 81.8 kg

DRUGS (4)
  1. VALCYCLOR [Concomitant]
     Route: 065
  2. VITAMIN B12 [Concomitant]
     Active Substance: CYANOCOBALAMIN
     Route: 065
  3. PREGABALIN. [Concomitant]
     Active Substance: PREGABALIN
     Route: 065
  4. REMICADE [Suspect]
     Active Substance: INFLIXIMAB
     Indication: CROHN^S DISEASE
     Route: 042
     Dates: start: 20060516

REACTIONS (3)
  - Herpes zoster [Recovered/Resolved]
  - Ear infection [Unknown]
  - Herpes zoster oticus [Recovered/Resolved with Sequelae]

NARRATIVE: CASE EVENT DATE: 201512
